FAERS Safety Report 6234575-7 (Version None)
Quarter: 2009Q2

REPORT INFORMATION
  Report Type: 
  Country: None (occurrence: None)
  Receive Date: 20090615
  Receipt Date: 20090430
  Transmission Date: 20091009
  Serious: No
  Sender: FDA-Public Use
  Company Number: DSA_33586_2009

PATIENT
  Sex: Male

DRUGS (2)
  1. XENAZINE [Suspect]
     Indication: OROMANDIBULAR DYSTONIA
     Dosage: 12.5 MG QD, 12.5 MG BID
     Dates: start: 20090408, end: 20090401
  2. XENAZINE [Suspect]
     Indication: OROMANDIBULAR DYSTONIA
     Dosage: 12.5 MG QD, 12.5 MG BID
     Dates: start: 20090401, end: 20090407

REACTIONS (3)
  - DRUG INEFFECTIVE FOR UNAPPROVED INDICATION [None]
  - DYSTONIA [None]
  - MASTICATION DISORDER [None]
